FAERS Safety Report 8000501-3 (Version None)
Quarter: 2011Q4

REPORT INFORMATION
  Report Type: 
  Country: None (occurrence: None)
  Receive Date: 20111222
  Receipt Date: 20111208
  Transmission Date: 20120403
  Serious: Yes (Hospitalization, Other)
  Sender: FDA-Public Use
  Company Number: FR-RANBAXY-2011RR-51108

PATIENT
  Age: 25 Year
  Sex: Female

DRUGS (1)
  1. ACETAMINOPHEN [Suspect]
     Indication: PRODUCT USED FOR UNKNOWN INDICATION
     Dosage: 24 G, SINGLE
     Route: 065

REACTIONS (4)
  - HEPATIC FAILURE [None]
  - OVERDOSE [None]
  - PREMATURE DELIVERY [None]
  - MATERNAL EXPOSURE DURING PREGNANCY [None]
